FAERS Safety Report 4994169-8 (Version None)
Quarter: 2006Q1

REPORT INFORMATION
  Report Type: 
  Country: None (occurrence: None)
  Receive Date: 20060313
  Receipt Date: 20050801
  Transmission Date: 20060701
  Serious: Yes (Hospitalization)
  Sender: FDA-Public Use
  Company Number: PHEH2005US08477

PATIENT
  Age: 43 Year
  Sex: Female

DRUGS (5)
  1. TRILEPTAL [Suspect]
     Indication: AFFECTIVE DISORDER
     Dosage: 600 MG,QID,ORAL;450 MG,QID,ORAL
     Route: 048
     Dates: start: 20030301, end: 20050802
  2. TRILEPTAL [Suspect]
     Indication: AFFECTIVE DISORDER
     Dosage: 600 MG,QID,ORAL;450 MG,QID,ORAL
     Route: 048
     Dates: start: 20050803
  3. CYMBALTA [Concomitant]
  4. CLONAZEPAM [Concomitant]
  5. RISPERDAL [Concomitant]

REACTIONS (5)
  - BLOOD SODIUM DECREASED [None]
  - HEADACHE [None]
  - LETHARGY [None]
  - NAUSEA [None]
  - THERAPEUTIC RESPONSE UNEXPECTED [None]
